FAERS Safety Report 4392585-9 (Version None)
Quarter: 2004Q3

REPORT INFORMATION
  Report Type: 
  Country: None (occurrence: None)
  Receive Date: 20040702
  Receipt Date: 20040626
  Transmission Date: 20050211
  Serious: Yes (Other)
  Sender: FDA-Public Use
  Company Number: ENT 2004-0129

PATIENT
  Age: 85 Year
  Sex: Male

DRUGS (7)
  1. COMTAN [Suspect]
     Indication: PARKINSON'S DISEASE
     Dosage: 800 MG  , ORAL
     Route: 048
     Dates: start: 20040412, end: 20040416
  2. TILDIEM [Suspect]
  3. DAFALGAN [Suspect]
  4. CORUNO [Concomitant]
  5. LORAZEPAM [Concomitant]
  6. PROLOPA [Concomitant]
  7. SERETIDE ^ALLEN + HANBURYS LTD^ [Concomitant]

REACTIONS (1)
  - TOXIC EPIDERMAL NECROLYSIS [None]
